FAERS Safety Report 11044554 (Version 1)
Quarter: 2015Q2

REPORT INFORMATION
  Report Type: Report from Study
  Country: JP (occurrence: JP)
  Receive Date: 20150417
  Receipt Date: 20150417
  Transmission Date: 20150821
  Serious: Yes (Hospitalization)
  Sender: FDA-Public Use
  Company Number: JP-EISAI MEDICAL RESEARCH-EC-2015-006021

PATIENT
  Age: 76 Year
  Sex: Male

DRUGS (13)
  1. TSUMURA YOKUKANSAN [Concomitant]
  2. ARICEPT [Suspect]
     Active Substance: DONEPEZIL HYDROCHLORIDE
     Route: 048
     Dates: start: 20111031, end: 20140801
  3. MADOPAR [Concomitant]
     Active Substance: BENSERAZIDE HYDROCHLORIDE\LEVODOPA
  4. MEILAX [Concomitant]
     Active Substance: ETHYL LOFLAZEPATE
  5. ARICEPT [Suspect]
     Active Substance: DONEPEZIL HYDROCHLORIDE
     Indication: DEMENTIA ALZHEIMER^S TYPE
     Route: 048
     Dates: start: 20111017, end: 20111030
  6. ECARD [Concomitant]
     Active Substance: CANDESARTAN CILEXETIL\HYDROCHLOROTHIAZIDE
  7. PURSENNID [Concomitant]
     Active Substance: SENNOSIDES A AND B
  8. BLOPRESS [Concomitant]
     Active Substance: CANDESARTAN CILEXETIL
  9. IRBETAN [Concomitant]
     Active Substance: IRBESARTAN
  10. MIRAPEX-LA [Concomitant]
  11. COMTAN [Concomitant]
     Active Substance: ENTACAPONE
  12. BI_SIFROL [Concomitant]
  13. TENORMIN [Concomitant]
     Active Substance: ATENOLOL

REACTIONS (1)
  - Rhabdomyolysis [Recovered/Resolved]

NARRATIVE: CASE EVENT DATE: 20140724
